FAERS Safety Report 4915732-6 (Version None)
Quarter: 2006Q1

REPORT INFORMATION
  Report Type: 
  Country: None (occurrence: None)
  Receive Date: 20060113
  Receipt Date: 20051003
  Transmission Date: 20060701
  Serious: No
  Sender: FDA-Public Use
  Company Number: 2005SP003327

PATIENT
  Age: 67 Year
  Sex: Male
  Weight: 136.0791 kg

DRUGS (5)
  1. LUNESTA [Suspect]
     Indication: INSOMNIA
     Dosage: HS;ORAL
     Route: 048
     Dates: start: 20050801, end: 20050801
  2. WARFARIN [Concomitant]
  3. LORTAB [Concomitant]
  4. PAIN MEDICATIONS [Concomitant]
  5. UNSPECIFIED ANTI-COAGULANT [Concomitant]

REACTIONS (1)
  - DYSGEUSIA [None]
